FAERS Safety Report 7770920-9 (Version None)
Quarter: 2011Q3

REPORT INFORMATION
  Report Type: 
  Country: None (occurrence: None)
  Receive Date: 20110922
  Receipt Date: 20101202
  Transmission Date: 20111222
  Serious: No
  Sender: FDA-Public Use
  Company Number: US-ASTRAZENECA-2010SE57238

PATIENT
  Age: 36 Year
  Sex: Female
  Weight: 56.2 kg

DRUGS (5)
  1. SEROQUEL [Suspect]
     Indication: OBSESSIVE-COMPULSIVE DISORDER
     Route: 048
     Dates: start: 20090101, end: 20100101
  2. SEROQUEL [Suspect]
     Indication: IRRITABILITY
     Route: 048
     Dates: start: 20090101, end: 20100101
  3. SEROQUEL [Suspect]
     Indication: ANXIETY
     Route: 048
     Dates: start: 20090101, end: 20100101
  4. SEROQUEL [Suspect]
     Indication: BIPOLAR DISORDER
     Route: 048
     Dates: start: 20090101, end: 20100101
  5. SEROQUEL [Suspect]
     Indication: SCHIZOPHRENIA
     Route: 048
     Dates: start: 20090101, end: 20100101

REACTIONS (3)
  - DRUG DOSE OMISSION [None]
  - MALAISE [None]
  - IRRITABILITY [None]
